FAERS Safety Report 9803775 (Version 1)
Quarter: 2014Q1

REPORT INFORMATION
  Report Type: Spontaneous
  Country: US (occurrence: US)
  Receive Date: 20140108
  Receipt Date: 20140108
  Transmission Date: 20141002
  Serious: No
  Sender: FDA-Public Use
  Company Number: US-GLAXOSMITHKLINE-A1036316A

PATIENT
  Age: 60 Year
  Sex: Male

DRUGS (12)
  1. LOVAZA [Suspect]
     Indication: BLOOD TRIGLYCERIDES INCREASED
     Dosage: 2CAP TWICE PER DAY
     Route: 048
     Dates: start: 201303
  2. HCTZ [Concomitant]
  3. METOPROLOL [Concomitant]
  4. METFORMIN [Concomitant]
  5. SIMVASTATIN [Concomitant]
  6. TRAMADOL [Concomitant]
  7. VICTOZA [Concomitant]
  8. CENTRUM SILVER [Concomitant]
  9. FLAX SEED [Concomitant]
  10. FOLIC ACID [Concomitant]
  11. METHOTREXATE [Concomitant]
  12. MOBIC [Concomitant]

REACTIONS (2)
  - Blood triglycerides increased [Not Recovered/Not Resolved]
  - Medication residue present [Not Recovered/Not Resolved]
